FAERS Safety Report 6412253-9 (Version None)
Quarter: 2009Q4

REPORT INFORMATION
  Report Type: 
  Country: None (occurrence: None)
  Receive Date: 20091023
  Receipt Date: 20091013
  Transmission Date: 20100525
  Serious: Yes (Disabling)
  Sender: FDA-Public Use
  Company Number: GB-PFIZER INC-2009282041

PATIENT
  Age: 57 Year

DRUGS (2)
  1. LIPITOR [Suspect]
     Indication: HYPERCHOLESTEROLAEMIA
     Dosage: 10 MG, 1X/DAY
     Route: 048
     Dates: start: 20000101, end: 20090801
  2. COZAAR [Concomitant]
     Dosage: 40 MG, 2X/DAY
     Route: 048

REACTIONS (2)
  - ALOPECIA [None]
  - AMNESIA [None]
